FAERS Safety Report 6928200-7 (Version None)
Quarter: 2010Q3

REPORT INFORMATION
  Report Type: 
  Country: None (occurrence: None)
  Receive Date: 20100810
  Receipt Date: 20100730
  Transmission Date: 20110219
  Serious: Yes (Other)
  Sender: FDA-Public Use
  Company Number: ALA_00624_2010

PATIENT
  Age: 64 Year
  Sex: Female

DRUGS (2)
  1. REGLAN [Suspect]
     Indication: GASTROOESOPHAGEAL REFLUX DISEASE
     Dosage: (DF)
  2. XANAX [Concomitant]

REACTIONS (17)
  - CHILLS [None]
  - CONFUSIONAL STATE [None]
  - DEPRESSION [None]
  - DIZZINESS [None]
  - DYSKINESIA [None]
  - FATIGUE [None]
  - GLUCOSE TOLERANCE IMPAIRED [None]
  - HEART RATE IRREGULAR [None]
  - HYPERHIDROSIS [None]
  - HYPERTENSION [None]
  - INSOMNIA [None]
  - MOVEMENT DISORDER [None]
  - RESTLESSNESS [None]
  - SOMNOLENCE [None]
  - STRESS [None]
  - SUICIDAL IDEATION [None]
  - THINKING ABNORMAL [None]
